FAERS Safety Report 10957679 (Version 1)
Quarter: 2015Q1

REPORT INFORMATION
  Report Type: Report from Study
  Country: IT (occurrence: IT)
  Receive Date: 20150326
  Receipt Date: 20150326
  Transmission Date: 20150721
  Serious: Yes (Death, Other)
  Sender: FDA-Public Use
  Company Number: IT-CELGENE-083-50794-14030325

PATIENT

DRUGS (2)
  1. REVLIMID [Suspect]
     Active Substance: LENALIDOMIDE
     Indication: MYELODYSPLASTIC SYNDROME
     Route: 048
     Dates: start: 201303
  2. VIDAZA [Suspect]
     Active Substance: AZACITIDINE
     Indication: MYELODYSPLASTIC SYNDROME
     Dosage: 75 MILLIGRAM/SQ. METER
     Route: 065
     Dates: start: 201303

REACTIONS (8)
  - Death [Fatal]
  - Febrile neutropenia [Fatal]
  - Toxicity to various agents [Unknown]
  - No therapeutic response [Unknown]
  - Myocardial infarction [Fatal]
  - Thrombocytopenia [Unknown]
  - Acute myeloid leukaemia [Unknown]
  - Haematotoxicity [Unknown]
